FAERS Safety Report 14148203 (Version 3)
Quarter: 2018Q3

REPORT INFORMATION
  Report Type: Spontaneous
  Country: US (occurrence: US)
  Receive Date: 20171101
  Receipt Date: 20180906
  Transmission Date: 20181010
  Serious: Yes (Other)
  Sender: FDA-Public Use
  Company Number: US-ASTRAZENECA-2017SF10168

PATIENT
  Age: 28724 Day
  Sex: Male
  Weight: 44 kg

DRUGS (53)
  1. NEXIUM [Suspect]
     Active Substance: ESOMEPRAZOLE MAGNESIUM
     Indication: GASTROOESOPHAGEAL REFLUX DISEASE
     Route: 048
     Dates: start: 200804, end: 201504
  2. NEXIUM [Suspect]
     Active Substance: ESOMEPRAZOLE MAGNESIUM
     Indication: ABDOMINAL PAIN UPPER
     Route: 048
     Dates: start: 201505, end: 201511
  3. NEXIUM [Suspect]
     Active Substance: ESOMEPRAZOLE MAGNESIUM
     Indication: PROPHYLAXIS AGAINST GASTROINTESTINAL ULCER
     Dosage: 40.0MG UNKNOWN
     Route: 048
  4. ASPIRIN. [Concomitant]
     Active Substance: ASPIRIN
     Indication: ANTIPLATELET THERAPY
     Route: 065
     Dates: start: 2016, end: 201805
  5. TUMS [Concomitant]
     Active Substance: CALCIUM CARBONATE
     Route: 065
  6. PROAIR HFA [Concomitant]
     Active Substance: ALBUTEROL SULFATE
     Route: 065
  7. ALPRAZOLAM. [Concomitant]
     Active Substance: ALPRAZOLAM
     Dosage: 1.0MG UNKNOWN
     Route: 048
  8. LEVAQUIN [Concomitant]
     Active Substance: LEVOFLOXACIN
     Dosage: 500.0MG UNKNOWN
     Route: 048
  9. CIALIS [Concomitant]
     Active Substance: TADALAFIL
     Route: 048
  10. ATENOLOL. [Concomitant]
     Active Substance: ATENOLOL
     Indication: HYPERTENSION
     Dosage: 60.0MG UNKNOWN
     Route: 048
     Dates: start: 2007, end: 2016
  11. NEXIUM [Suspect]
     Active Substance: ESOMEPRAZOLE MAGNESIUM
     Indication: PEPTIC ULCER
     Route: 048
     Dates: start: 200804, end: 200810
  12. NEXIUM [Suspect]
     Active Substance: ESOMEPRAZOLE MAGNESIUM
     Indication: GASTROOESOPHAGEAL REFLUX DISEASE
     Route: 048
     Dates: start: 201505, end: 201511
  13. NEXIUM [Suspect]
     Active Substance: ESOMEPRAZOLE MAGNESIUM
     Indication: PEPTIC ULCER
     Route: 048
     Dates: start: 201505, end: 201511
  14. EVISTA [Concomitant]
     Active Substance: RALOXIFENE HYDROCHLORIDE
     Dosage: 60.0MG UNKNOWN
     Route: 048
  15. RALOXIFENE. [Concomitant]
     Active Substance: RALOXIFENE
     Dosage: 60.0MG UNKNOWN
     Route: 048
  16. NEXIUM [Suspect]
     Active Substance: ESOMEPRAZOLE MAGNESIUM
     Indication: ABDOMINAL PAIN UPPER
     Route: 048
     Dates: start: 201301, end: 201606
  17. NEXIUM [Suspect]
     Active Substance: ESOMEPRAZOLE MAGNESIUM
     Indication: PROPHYLAXIS AGAINST GASTROINTESTINAL ULCER
     Route: 048
     Dates: start: 201505, end: 201511
  18. NEXIUM [Suspect]
     Active Substance: ESOMEPRAZOLE MAGNESIUM
     Indication: GASTROOESOPHAGEAL REFLUX DISEASE
     Route: 048
     Dates: start: 201505, end: 201511
  19. CVS ALLERGY RELIEF [Concomitant]
     Route: 048
  20. AMITRIPTYLINE [Concomitant]
     Active Substance: AMITRIPTYLINE
     Dosage: 10.0MG UNKNOWN
     Route: 048
  21. FUROSEMIDE. [Concomitant]
     Active Substance: FUROSEMIDE
     Dosage: 60.0MG UNKNOWN
     Route: 048
  22. NEXIUM [Suspect]
     Active Substance: ESOMEPRAZOLE MAGNESIUM
     Indication: PROPHYLAXIS AGAINST GASTROINTESTINAL ULCER
     Route: 048
     Dates: start: 200804, end: 200810
  23. SINGULAIR [Concomitant]
     Active Substance: MONTELUKAST SODIUM
     Route: 048
  24. CARVEDILOL. [Concomitant]
     Active Substance: CARVEDILOL
     Dosage: 60.0MG UNKNOWN
     Route: 048
  25. NEXIUM [Suspect]
     Active Substance: ESOMEPRAZOLE MAGNESIUM
     Indication: PROPHYLAXIS AGAINST GASTROINTESTINAL ULCER
     Route: 048
     Dates: start: 201301, end: 201606
  26. NEXIUM [Suspect]
     Active Substance: ESOMEPRAZOLE MAGNESIUM
     Indication: GASTROOESOPHAGEAL REFLUX DISEASE
     Route: 048
     Dates: start: 200804, end: 201504
  27. NEXIUM [Suspect]
     Active Substance: ESOMEPRAZOLE MAGNESIUM
     Indication: ABDOMINAL PAIN UPPER
     Route: 048
     Dates: start: 200804, end: 201504
  28. NEXIUM [Suspect]
     Active Substance: ESOMEPRAZOLE MAGNESIUM
     Indication: GASTROOESOPHAGEAL REFLUX DISEASE
     Dosage: 40.0MG UNKNOWN
     Route: 048
  29. NEXIUM [Suspect]
     Active Substance: ESOMEPRAZOLE MAGNESIUM
     Indication: PEPTIC ULCER
     Dosage: 40.0MG UNKNOWN
     Route: 048
  30. FAMOTIDINE. [Concomitant]
     Active Substance: FAMOTIDINE
     Route: 065
     Dates: start: 2015
  31. PROMETHAZINE [Concomitant]
     Active Substance: PROMETHAZINE\PROMETHAZINE HYDROCHLORIDE
     Route: 065
  32. NEXIUM [Suspect]
     Active Substance: ESOMEPRAZOLE MAGNESIUM
     Indication: GASTROOESOPHAGEAL REFLUX DISEASE
     Route: 048
     Dates: start: 200804, end: 200810
  33. NEXIUM [Suspect]
     Active Substance: ESOMEPRAZOLE MAGNESIUM
     Indication: ABDOMINAL PAIN UPPER
     Route: 048
     Dates: start: 200804, end: 200810
  34. NEXIUM [Suspect]
     Active Substance: ESOMEPRAZOLE MAGNESIUM
     Indication: GASTROOESOPHAGEAL REFLUX DISEASE
     Route: 048
     Dates: start: 201301, end: 201606
  35. NEXIUM [Suspect]
     Active Substance: ESOMEPRAZOLE MAGNESIUM
     Indication: PEPTIC ULCER
     Route: 048
     Dates: start: 200804, end: 201504
  36. NEXIUM [Suspect]
     Active Substance: ESOMEPRAZOLE MAGNESIUM
     Indication: GASTROOESOPHAGEAL REFLUX DISEASE
     Dosage: 40.0MG UNKNOWN
     Route: 048
  37. FAMOTIDINE. [Concomitant]
     Active Substance: FAMOTIDINE
     Route: 065
     Dates: start: 2007, end: 200803
  38. AVODART [Concomitant]
     Active Substance: DUTASTERIDE
     Route: 048
  39. CEPHALEXIN. [Concomitant]
     Active Substance: CEPHALEXIN
     Indication: INFECTION
     Route: 048
     Dates: start: 2007
  40. VERAPAMIL [Concomitant]
     Active Substance: VERAPAMIL HYDROCHLORIDE
     Dosage: 180.0MG UNKNOWN
     Route: 048
  41. HYDROCODONE?APAP [Concomitant]
     Active Substance: ACETAMINOPHEN\HYDROCODONE
     Dosage: 500.0MG UNKNOWN
     Route: 048
  42. NEXIUM [Suspect]
     Active Substance: ESOMEPRAZOLE MAGNESIUM
     Indication: GASTROOESOPHAGEAL REFLUX DISEASE
     Route: 048
     Dates: start: 200804, end: 200810
  43. NEXIUM [Suspect]
     Active Substance: ESOMEPRAZOLE MAGNESIUM
     Indication: GASTROOESOPHAGEAL REFLUX DISEASE
     Route: 048
     Dates: start: 201301, end: 201606
  44. NEXIUM [Suspect]
     Active Substance: ESOMEPRAZOLE MAGNESIUM
     Indication: PROPHYLAXIS AGAINST GASTROINTESTINAL ULCER
     Route: 048
     Dates: start: 200804, end: 201504
  45. LIPITOR [Concomitant]
     Active Substance: ATORVASTATIN CALCIUM
     Route: 048
  46. FLOMAX [Concomitant]
     Active Substance: TAMSULOSIN HYDROCHLORIDE
     Route: 048
  47. NEXIUM [Suspect]
     Active Substance: ESOMEPRAZOLE MAGNESIUM
     Indication: PEPTIC ULCER
     Route: 048
     Dates: start: 201301, end: 201606
  48. NEXIUM [Suspect]
     Active Substance: ESOMEPRAZOLE MAGNESIUM
     Indication: ABDOMINAL PAIN UPPER
     Dosage: 40.0MG UNKNOWN
     Route: 048
  49. COQ10 [Concomitant]
     Active Substance: UBIDECARENONE
     Indication: ASTHENIA
     Route: 065
     Dates: start: 201803
  50. AMLODIPINE [Concomitant]
     Active Substance: AMLODIPINE BESYLATE
     Route: 048
     Dates: start: 2009, end: 2016
  51. ZOSTAVAX [Concomitant]
     Active Substance: VARICELLA-ZOSTER VIRUS STRAIN OKA/MERCK LIVE ANTIGEN
     Route: 065
  52. ZANAFLEX [Concomitant]
     Active Substance: TIZANIDINE HYDROCHLORIDE
     Dosage: 2.0MG UNKNOWN
     Route: 048
  53. VIAGRA [Concomitant]
     Active Substance: SILDENAFIL CITRATE
     Dosage: 5.0MG UNKNOWN
     Route: 048

REACTIONS (3)
  - Chronic kidney disease [Not Recovered/Not Resolved]
  - End stage renal disease [Not Recovered/Not Resolved]
  - Acute kidney injury [Not Recovered/Not Resolved]

NARRATIVE: CASE EVENT DATE: 20151125
